FAERS Safety Report 11773991 (Version 1)
Quarter: 2015Q4

REPORT INFORMATION
  Report Type: Spontaneous
  Country: MX (occurrence: MX)
  Receive Date: 20151124
  Receipt Date: 20151124
  Transmission Date: 20160304
  Serious: Yes (Other)
  Sender: FDA-Public Use
  Company Number: MX-FRESENIUS KABI-FK201506027

PATIENT
  Sex: Male

DRUGS (2)
  1. SUFREXAL P [Suspect]
     Active Substance: BENZOCAINE\KETANSERIN
     Indication: SKIN WOUND
     Route: 003
  2. PARACETAMOL (MANUFACTURER UNKNOWN) [Suspect]
     Active Substance: ACETAMINOPHEN
     Indication: SURGERY
     Route: 048

REACTIONS (4)
  - Irritability [None]
  - Methaemoglobinaemia [Recovered/Resolved]
  - Tachypnoea [None]
  - Lactic acidosis [None]
